FAERS Safety Report 6197874-3 (Version None)
Quarter: 2009Q2

REPORT INFORMATION
  Report Type: 
  Country: None (occurrence: None)
  Receive Date: 20090521
  Receipt Date: 20090512
  Transmission Date: 20091009
  Serious: Yes (Other)
  Sender: FDA-Public Use
  Company Number: AT-ELI_LILLY_AND_COMPANY-AT200905002344

PATIENT
  Age: 82 Year
  Sex: Female

DRUGS (3)
  1. FORTEO [Suspect]
     Indication: OSTEOPOROSIS
     Dosage: UNK UNK, DAILY (1/D)
     Route: 058
     Dates: start: 20081111
  2. ANTIDEPRESSANTS [Concomitant]
     Dosage: UNK, UNKNOWN
     Route: 065
  3. CALCIUM W/VITAMIN D /00188401/ [Concomitant]
     Dosage: 1000 MG, UNKNOWN
     Route: 065

REACTIONS (5)
  - ANOREXIA [None]
  - ARTHRALGIA [None]
  - MALAISE [None]
  - NEPHROLITHIASIS [None]
  - WEIGHT DECREASED [None]
